FAERS Safety Report 6852050-3 (Version None)
Quarter: 2010Q3

REPORT INFORMATION
  Report Type: 
  Country: None (occurrence: None)
  Receive Date: 20100717
  Receipt Date: 20080207
  Transmission Date: 20110219
  Serious: No
  Sender: FDA-Public Use
  Company Number: US-PFIZER INC-2007092442

PATIENT
  Sex: Female
  Weight: 76.7 kg

DRUGS (10)
  1. CHANTIX [Suspect]
     Indication: SMOKING CESSATION THERAPY
     Route: 048
     Dates: start: 20071001, end: 20080101
  2. NEXIUM [Concomitant]
  3. TOPROL-XL [Concomitant]
  4. GLUCOTROL [Concomitant]
  5. ZETIA [Concomitant]
  6. ACETYLSALICYLIC ACID [Concomitant]
  7. MULTI-VITAMINS [Concomitant]
  8. ZESTRIL [Concomitant]
     Indication: HYPERTENSION
  9. PLAVIX [Concomitant]
  10. TOPROL-XL [Concomitant]

REACTIONS (7)
  - ABNORMAL DREAMS [None]
  - DEPRESSION [None]
  - DYSPNOEA [None]
  - FEELING ABNORMAL [None]
  - HYPERHIDROSIS [None]
  - INSOMNIA [None]
  - MALAISE [None]
